FAERS Safety Report 7327394-1 (Version None)
Quarter: 2011Q1

REPORT INFORMATION
  Report Type: 
  Country: None (occurrence: None)
  Receive Date: 20110302
  Receipt Date: 20110218
  Transmission Date: 20110831
  Serious: Yes (Other)
  Sender: FDA-Public Use
  Company Number: US-BAYER-201021423NA

PATIENT
  Sex: Female

DRUGS (4)
  1. CIPRO [Suspect]
     Indication: DIVERTICULITIS
     Dosage: 500 MG, BID
     Dates: start: 20090101, end: 20090101
  2. CIPRO [Suspect]
     Indication: INFECTION
     Dosage: 500 MG, BID
  3. CIPRO [Suspect]
     Dosage: 500 MG, BID
     Dates: start: 20090101, end: 20091001
  4. CIPRO [Suspect]
     Indication: COLECTOMY
     Dosage: 500 MG, BID
     Dates: start: 20030101

REACTIONS (30)
  - TENDON RUPTURE [None]
  - ARTHRALGIA [None]
  - BURNING SENSATION [None]
  - CONFUSIONAL STATE [None]
  - VISUAL IMPAIRMENT [None]
  - TENDON DISORDER [None]
  - PAIN [None]
  - NEURALGIA [None]
  - THOUGHT BLOCKING [None]
  - MUSCULAR WEAKNESS [None]
  - TINNITUS [None]
  - VERTIGO [None]
  - MUSCULOSKELETAL DISORDER [None]
  - MUSCULOSKELETAL PAIN [None]
  - HEADACHE [None]
  - WEIGHT DECREASED [None]
  - DEAFNESS [None]
  - GASTROINTESTINAL DISORDER [None]
  - ARTHROPATHY [None]
  - GENERAL PHYSICAL HEALTH DETERIORATION [None]
  - MUSCULOSKELETAL DISCOMFORT [None]
  - LIGAMENT RUPTURE [None]
  - MEMORY IMPAIRMENT [None]
  - ANXIETY [None]
  - AFFECT LABILITY [None]
  - NERVOUS SYSTEM DISORDER [None]
  - MUSCLE RUPTURE [None]
  - LIGAMENT DISORDER [None]
  - NIGHTMARE [None]
  - CARTILAGE INJURY [None]
